FAERS Safety Report 15540633 (Version 1)
Quarter: 2018Q4

REPORT INFORMATION
  Report Type: Spontaneous
  Country: FR (occurrence: FR)
  Receive Date: 20181023
  Receipt Date: 20181023
  Transmission Date: 20190205
  Serious: Yes (Hospitalization)
  Sender: FDA-Public Use
  Company Number: FR-ASTRAZENECA-2018SF36118

PATIENT
  Age: 57 Year
  Sex: Male
  Weight: 56 kg

DRUGS (10)
  1. FLECAINE LP [Concomitant]
     Active Substance: FLECAINIDE
     Route: 048
  2. METFORMIN [Concomitant]
     Active Substance: METFORMIN HYDROCHLORIDE
     Route: 048
  3. MELATONIN [Concomitant]
     Active Substance: MELATONIN
     Route: 048
  4. BRINTELLIX [Concomitant]
     Active Substance: VORTIOXETINE HYDROBROMIDE
     Route: 048
  5. TEMERIT [Concomitant]
     Active Substance: NEBIVOLOL
     Route: 048
  6. PREVISCAN (FLUINDIONE) [Concomitant]
     Active Substance: FLUINDIONE
     Route: 048
  7. INIPOMP [Concomitant]
     Active Substance: PANTOPRAZOLE SODIUM
     Route: 048
  8. XEROQUEL LP [Suspect]
     Active Substance: QUETIAPINE FUMARATE
     Indication: INSOMNIA
     Route: 048
     Dates: start: 201802, end: 20180910
  9. NOCTAMIDE [Concomitant]
     Active Substance: LORMETAZEPAM
     Route: 048
  10. TAHOR [Concomitant]
     Active Substance: ATORVASTATIN CALCIUM
     Route: 048

REACTIONS (2)
  - Hyperglycaemia [Recovering/Resolving]
  - Diabetic ketoacidosis [Recovering/Resolving]

NARRATIVE: CASE EVENT DATE: 201802
